FAERS Safety Report 9355291 (Version 2)
Quarter: 2013Q2

REPORT INFORMATION
  Report Type: Report from Study
  Country: US (occurrence: US)
  Receive Date: 20130619
  Receipt Date: 20130627
  Transmission Date: 20140414
  Serious: Yes (Hospitalization, Other)
  Sender: FDA-Public Use
  Company Number: US-PURDUE-USA-2013-0103480

PATIENT
  Sex: Female

DRUGS (1)
  1. OXYCONTIN (NDA 22-272) [Suspect]
     Indication: PRODUCT USED FOR UNKNOWN INDICATION
     Dosage: 20 MG, BID
     Route: 048

REACTIONS (7)
  - Pneumonia [Unknown]
  - Loss of consciousness [Unknown]
  - Pneumothorax [Recovered/Resolved]
  - Surgery [Unknown]
  - Cellulitis [Recovered/Resolved]
  - Cellulitis staphylococcal [Unknown]
  - Hospitalisation [Recovered/Resolved]
